FAERS Safety Report 7778256-7 (Version None)
Quarter: 2011Q3

REPORT INFORMATION
  Report Type: 
  Country: None (occurrence: None)
  Receive Date: 20110926
  Receipt Date: 20110915
  Transmission Date: 20111222
  Serious: Yes (Other)
  Sender: FDA-Public Use
  Company Number: PHEH2011US04185

PATIENT
  Sex: Female

DRUGS (20)
  1. ZANTAC 75 [Concomitant]
     Dosage: UNK UKN, UNK
     Route: 065
  2. GLUCOSE/CHOND [Concomitant]
     Dosage: UNK UKN, UNK
  3. GLEEVEC [Suspect]
     Dosage: 400 MG, DAILY
     Route: 048
     Dates: start: 20030101
  4. PROBIOTICA [Concomitant]
     Dosage: UNK UKN, UNK
     Route: 065
  5. CALCIUM CARBONATE [Concomitant]
     Dosage: UNK UKN, UNK
  6. POTASSIUM [Concomitant]
     Dosage: 25 MEQ
  7. ALBUTEROL [Concomitant]
     Dosage: 90 UG,
     Route: 065
  8. OXYCODONE AND ACETAMINOPHEN [Concomitant]
     Dosage: 325 MG,
     Route: 065
  9. AMINO ACIDS [Concomitant]
     Dosage: UNK UKN, UNK
     Route: 065
  10. VITAMIN D [Concomitant]
     Dosage: 1000 UNITS
  11. ZOLOFT [Concomitant]
     Dosage: 25 MG,
     Route: 065
  12. LISINOPRIL [Concomitant]
     Dosage: 10 MG,
  13. TOPROL-XL [Concomitant]
     Dosage: 25 MG,
     Route: 065
  14. LOVAZA [Concomitant]
     Dosage: 1000 MG
  15. VITAMIN B COMPLEX CAP [Concomitant]
     Dosage: UNK UKN, UNK
     Route: 065
  16. NATURAL VEG  LAXATIVE [Concomitant]
     Dosage: UNK UKN, UNK
     Route: 065
  17. ESTRADIOL DIS [Concomitant]
     Dosage: 0.1 MG,
  18. MULTI-VITAMIN [Concomitant]
     Dosage: UNK UKN, UNK
  19. PRILOSEC [Concomitant]
     Dosage: UNK UKN, UNK
     Route: 065
  20. CHROMIUM PICOLINATE [Concomitant]
     Dosage: UNK UKN, UNK

REACTIONS (2)
  - DRUG INEFFECTIVE [None]
  - CATARACT [None]
